FAERS Safety Report 13437282 (Version 2)
Quarter: 2017Q2

REPORT INFORMATION
  Report Type: Spontaneous
  Country: IT (occurrence: IT)
  Receive Date: 20170413
  Receipt Date: 20170629
  Transmission Date: 20170830
  Serious: Yes (Death, Other)
  Sender: FDA-Public Use
  Company Number: IT-ARIAD-2017IT008067

PATIENT

DRUGS (17)
  1. METHOTREXATE (METHOTREXATE SODIUM) [Concomitant]
     Active Substance: METHOTREXATE SODIUM
     Indication: CHRONIC MYELOID LEUKAEMIA RECURRENT
     Dosage: UNK
  2. THIOTEPA. [Concomitant]
     Active Substance: THIOTEPA
     Indication: BONE MARROW CONDITIONING REGIMEN
     Dosage: UNK
  3. TREOSULFAN [Concomitant]
     Active Substance: TREOSULFAN
     Dosage: UNK
  4. ICLUSIG [Suspect]
     Active Substance: PONATINIB
     Dosage: 30 MG, QD
     Route: 048
     Dates: start: 20160805, end: 20160905
  5. ICLUSIG [Suspect]
     Active Substance: PONATINIB
     Indication: CHRONIC MYELOID LEUKAEMIA
     Dosage: 15 MG, QD
     Dates: start: 20160620, end: 20160804
  6. CYCLOPHOSPHAMIDE. [Concomitant]
     Active Substance: CYCLOPHOSPHAMIDE
     Dosage: UNK
  7. RAPAMUNE [Concomitant]
     Active Substance: SIROLIMUS
     Indication: PROPHYLAXIS AGAINST GRAFT VERSUS HOST DISEASE
     Dosage: UNK
     Dates: end: 20160617
  8. 6 MP [Concomitant]
     Active Substance: MERCAPTOPURINE
     Indication: CHRONIC MYELOID LEUKAEMIA RECURRENT
     Dosage: UNK
  9. 6 MP [Concomitant]
     Active Substance: MERCAPTOPURINE
     Dosage: UNK
  10. THIOTEPA. [Concomitant]
     Active Substance: THIOTEPA
     Dosage: UNK
  11. FLUDARABINE [Concomitant]
     Active Substance: FLUDARABINE PHOSPHATE
     Dosage: UNK
  12. MMF [Concomitant]
     Active Substance: MYCOPHENOLATE MOFETIL
     Dosage: UNK
  13. METHYLPREDNISOLONE. [Concomitant]
     Active Substance: METHYLPREDNISOLONE
     Indication: ACUTE GRAFT VERSUS HOST DISEASE IN SKIN
     Dosage: 0.6 MG/KG, QD
     Dates: end: 20160511
  14. FLUDARABINE [Concomitant]
     Active Substance: FLUDARABINE PHOSPHATE
     Indication: BONE MARROW CONDITIONING REGIMEN
     Dosage: UNK
  15. CYCLOPHOSPHAMIDE. [Concomitant]
     Active Substance: CYCLOPHOSPHAMIDE
     Indication: PROPHYLAXIS AGAINST GRAFT VERSUS HOST DISEASE
     Dosage: UNK
  16. MMF [Concomitant]
     Active Substance: MYCOPHENOLATE MOFETIL
     Indication: PROPHYLAXIS AGAINST GRAFT VERSUS HOST DISEASE
     Dosage: UNK
  17. TREOSULFAN [Concomitant]
     Active Substance: TREOSULFAN
     Indication: BONE MARROW CONDITIONING REGIMEN
     Dosage: UNK

REACTIONS (9)
  - Cytopenia [Unknown]
  - Hypertension [Unknown]
  - General physical health deterioration [Unknown]
  - Chronic myeloid leukaemia recurrent [Unknown]
  - Central nervous system haemorrhage [Unknown]
  - Acute graft versus host disease in skin [Recovered/Resolved]
  - Disease progression [Fatal]
  - Disseminated intravascular coagulation [Unknown]
  - Pyrexia [Unknown]

NARRATIVE: CASE EVENT DATE: 201510
